FAERS Safety Report 15547001 (Version 2)
Quarter: 2018Q4

REPORT INFORMATION
  Report Type: Spontaneous
  Country: US (occurrence: US)
  Receive Date: 20181024
  Receipt Date: 20181029
  Transmission Date: 20190205
  Serious: No
  Sender: FDA-Public Use
  Company Number: US-PFIZER INC-2018423131

PATIENT
  Age: 64 Year
  Sex: Female

DRUGS (1)
  1. IBRANCE [Suspect]
     Active Substance: PALBOCICLIB
     Dosage: 125 MG, UNK

REACTIONS (5)
  - Blood creatinine increased [Recovering/Resolving]
  - Acidosis [Unknown]
  - Urinary tract infection [Unknown]
  - Tachycardia [Recovered/Resolved]
  - Pyrexia [Unknown]
